FAERS Safety Report 22178013 (Version 2)
Quarter: 2023Q2

REPORT INFORMATION
  Report Type: Spontaneous
  Country: US (occurrence: US)
  Receive Date: 20230405
  Receipt Date: 20230619
  Transmission Date: 20230721
  Serious: Yes (Other)
  Sender: FDA-Public Use
  Company Number: US-BRISTOL-MYERS SQUIBB COMPANY-2023-044203

PATIENT
  Age: 21 Year
  Sex: Male

DRUGS (11)
  1. THALOMID [Suspect]
     Active Substance: THALIDOMIDE
     Indication: Medulloblastoma recurrent
     Route: 048
     Dates: start: 20221024, end: 20230328
  2. DEXAMETHASONE [Concomitant]
     Active Substance: DEXAMETHASONE
     Indication: Product used for unknown indication
  3. ETOPOSIDE [Concomitant]
     Active Substance: ETOPOSIDE
     Indication: Medulloblastoma
     Dosage: 100MC/15ML INJ, 5ML
     Route: 048
     Dates: start: 20221024
  4. FAMOTIDINE [Concomitant]
     Active Substance: FAMOTIDINE
     Indication: Product used for unknown indication
  5. FENOFIBRATE [Concomitant]
     Active Substance: FENOFIBRATE
     Indication: Medulloblastoma
  6. FENOFIBRATE [Concomitant]
     Active Substance: FENOFIBRATE
     Route: 048
     Dates: start: 20221024
  7. IBUPROFEN [Concomitant]
     Active Substance: IBUPROFEN
     Indication: Product used for unknown indication
  8. ONDANSETRON [Concomitant]
     Active Substance: ONDANSETRON
     Indication: Product used for unknown indication
  9. TYLENOL [Concomitant]
     Active Substance: ACETAMINOPHEN
     Indication: Product used for unknown indication
  10. CYCLOPHOSPHAMIDE [Concomitant]
     Active Substance: CYCLOPHOSPHAMIDE
     Indication: Medulloblastoma
     Route: 048
     Dates: start: 20221024
  11. CELECOXIB [Concomitant]
     Active Substance: CELECOXIB
     Indication: Medulloblastoma
     Route: 048
     Dates: start: 20221024

REACTIONS (4)
  - Neutropenia [Recovering/Resolving]
  - Off label use [Unknown]
  - Hypoaesthesia [Recovered/Resolved]
  - Paraesthesia [Recovered/Resolved]

NARRATIVE: CASE EVENT DATE: 20230228
